FAERS Safety Report 5241512-0 (Version None)
Quarter: 2007Q1

REPORT INFORMATION
  Report Type: 
  Country: None (occurrence: None)
  Receive Date: 20070215
  Receipt Date: 20070215
  Transmission Date: 20070707
  Serious: No
  Sender: FDA-Public Use
  Company Number: None

PATIENT
  Sex: Female
  Weight: 86.1834 kg

DRUGS (1)
  1. OPTIRAY 350 [Suspect]
     Indication: ABDOMINAL PAIN
     Dosage: 100CC 1.7CC/SEC RT AG
     Dates: start: 20070208

REACTIONS (2)
  - POST PROCEDURAL COMPLICATION [None]
  - URTICARIA [None]
